FAERS Safety Report 7474946-4 (Version None)
Quarter: 2011Q2

REPORT INFORMATION
  Report Type: 
  Country: None (occurrence: None)
  Receive Date: 20110505
  Receipt Date: 20110428
  Transmission Date: 20111010
  Serious: Yes (Hospitalization)
  Sender: FDA-Public Use
  Company Number: FR-20110084

PATIENT
  Age: 55 Year
  Sex: Female

DRUGS (8)
  1. HEXABRIX [Suspect]
     Indication: ARTERIOGRAM CORONARY
     Route: 042
     Dates: start: 20010101, end: 20010101
  2. THOR (ATORVASTATIN) (ATORVASTATIN) [Concomitant]
  3. IMOVANE (ZOPICLONE) (ZOPICLONE) [Concomitant]
  4. AMLOR (AMLODIPINE) (AMLODIPINE) [Concomitant]
  5. KARDEGIC (ACETYLSALICYLIC ACID) (ACETYLSALICYLIC ACID) [Concomitant]
  6. APROVEL (IRBESARTAN) (IRBESARTAN) [Concomitant]
  7. LASILIX (FUROSEMIDE) (FUROSEMIDE) [Concomitant]
  8. PREVISCAN (FLUINDIONE) (FLUINDIONE) [Concomitant]

REACTIONS (8)
  - LOSS OF CONSCIOUSNESS [None]
  - HYPERSENSITIVITY [None]
  - SYNCOPE [None]
  - LACTIC ACIDOSIS [None]
  - BRADYCARDIA [None]
  - CIRCULATORY COLLAPSE [None]
  - HAEMOLYSIS [None]
  - HYPOTENSION [None]
